FAERS Safety Report 4566967-6 (Version None)
Quarter: 2005Q1

REPORT INFORMATION
  Report Type: 
  Country: None (occurrence: None)
  Receive Date: 20050201
  Receipt Date: 20040106
  Transmission Date: 20050727
  Serious: Yes (Other)
  Sender: FDA-Public Use
  Company Number: US-BRISTOL-MYERS SQUIBB COMPANY-12472395

PATIENT
  Age: 63 Year
  Sex: Female

DRUGS (10)
  1. STADOL [Suspect]
     Dosage: DOSING: 10MG/ML
     Route: 045
     Dates: start: 19950908
  2. ROXICET [Concomitant]
     Dosage: DOSING: 5-325 MG
     Dates: start: 19950825
  3. ULTRAM [Concomitant]
     Dates: start: 19950816
  4. CIPRO [Concomitant]
     Dates: start: 19950825
  5. HYDROCODONE + ACETAMINOPHEN [Concomitant]
     Dates: start: 19950830
  6. NAPROXEN SODIUM [Concomitant]
     Dates: start: 19950901
  7. DEMEROL [Concomitant]
     Dates: start: 19950914
  8. LORAZEPAM [Concomitant]
     Dates: start: 19951004
  9. LOPROX [Concomitant]
     Dates: start: 19960217
  10. ISOLLYL [Concomitant]
     Dates: start: 19951117

REACTIONS (1)
  - DEPENDENCE [None]
